FAERS Safety Report 6945142-1 (Version None)
Quarter: 2010Q3

REPORT INFORMATION
  Report Type: 
  Country: None (occurrence: None)
  Receive Date: 20100827
  Receipt Date: 20100818
  Transmission Date: 20110219
  Serious: Yes (Other)
  Sender: FDA-Public Use
  Company Number: US-AMGEN-QUU428267

PATIENT
  Sex: Female

DRUGS (3)
  1. ENBREL [Suspect]
     Indication: RHEUMATOID ARTHRITIS
     Route: 058
     Dates: start: 20030121
  2. METHOTREXATE [Concomitant]
     Dates: start: 20080602
  3. ULTRAM [Concomitant]
     Route: 048
     Dates: start: 20011130

REACTIONS (5)
  - HEPATIC STEATOSIS [None]
  - LYMPHOCYTE PERCENTAGE ABNORMAL [None]
  - NEUTROPHIL COUNT DECREASED [None]
  - NEUTROPHIL PERCENTAGE ABNORMAL [None]
  - WHITE BLOOD CELL COUNT DECREASED [None]
